FAERS Safety Report 9058176 (Version 2)
Quarter: 2013Q1

REPORT INFORMATION
  Report Type: Spontaneous
  Country: US (occurrence: US)
  Receive Date: 20130211
  Receipt Date: 20130325
  Transmission Date: 20140127
  Serious: Yes (Hospitalization)
  Sender: FDA-Public Use
  Company Number: US-BIOGENIDEC-2013BI011081

PATIENT
  Age: 46 Year
  Sex: Female

DRUGS (2)
  1. TYSABRI [Suspect]
     Indication: MULTIPLE SCLEROSIS
     Route: 042
     Dates: start: 20121022, end: 20121119
  2. TYSABRI [Suspect]
     Indication: MULTIPLE SCLEROSIS

REACTIONS (4)
  - Mental impairment [Unknown]
  - Multiple sclerosis relapse [Unknown]
  - Pain in extremity [Unknown]
  - Central nervous system lesion [Unknown]
